FAERS Safety Report 16814616 (Version 3)
Quarter: 2022Q2

REPORT INFORMATION
  Report Type: Spontaneous
  Country: US (occurrence: None)
  Receive Date: 20190917
  Receipt Date: 20220517
  Transmission Date: 20220721
  Serious: Yes (Hospitalization, Other)
  Sender: FDA-Public Use
  Company Number: 2018SF21133

PATIENT
  Age: 19418 Day
  Sex: Female
  Weight: 107 kg

DRUGS (50)
  1. NEXIUM [Suspect]
     Active Substance: ESOMEPRAZOLE MAGNESIUM
     Route: 048
  2. NEXIUM [Suspect]
     Active Substance: ESOMEPRAZOLE MAGNESIUM
     Dosage: GENERIC
     Route: 065
  3. NEXIUM 24HR [Suspect]
     Active Substance: ESOMEPRAZOLE MAGNESIUM
     Route: 048
  4. PRILOSEC [Suspect]
     Active Substance: OMEPRAZOLE MAGNESIUM
     Route: 048
  5. PRILOSEC [Suspect]
     Active Substance: OMEPRAZOLE MAGNESIUM
     Dosage: GENERIC
     Route: 065
  6. PRILOSEC OTC [Suspect]
     Active Substance: OMEPRAZOLE MAGNESIUM
     Route: 048
  7. PRILOSEC OTC [Suspect]
     Active Substance: OMEPRAZOLE MAGNESIUM
     Dosage: GENERIC
     Route: 065
  8. PRILOSEC OTC [Suspect]
     Active Substance: OMEPRAZOLE MAGNESIUM
     Dosage: 20 MG/L DAILY
     Route: 048
  9. PREVACID [Suspect]
     Active Substance: LANSOPRAZOLE
     Indication: Gastrooesophageal reflux disease
     Dosage: GENERIC
     Route: 065
  10. PREVACID [Suspect]
     Active Substance: LANSOPRAZOLE
     Indication: Gastrooesophageal reflux disease
     Route: 065
     Dates: start: 201507, end: 201710
  11. PREVACID [Suspect]
     Active Substance: LANSOPRAZOLE
     Indication: Gastrooesophageal reflux disease
     Route: 065
     Dates: start: 20150728, end: 20170915
  12. PREVACID 24 HR [Suspect]
     Active Substance: LANSOPRAZOLE
     Route: 065
  13. PROTONIX [Suspect]
     Active Substance: PANTOPRAZOLE SODIUM
     Indication: Gastrooesophageal reflux disease
     Route: 065
  14. PROTONIX [Suspect]
     Active Substance: PANTOPRAZOLE SODIUM
     Indication: Gastrooesophageal reflux disease
     Dosage: GENERIC
     Route: 065
     Dates: start: 201706, end: 201707
  15. PROTONIX [Suspect]
     Active Substance: PANTOPRAZOLE SODIUM
     Indication: Gastrooesophageal reflux disease
     Route: 065
     Dates: start: 20170203, end: 20170915
  16. PROTONIX [Suspect]
     Active Substance: PANTOPRAZOLE SODIUM
     Indication: Gastrooesophageal reflux disease
     Dosage: GENERIC40.0MG UNKNOWN
     Route: 065
     Dates: start: 20170629
  17. ATORVASTATIN [Concomitant]
     Active Substance: ATORVASTATIN
  18. CRESTOR [Concomitant]
     Active Substance: ROSUVASTATIN CALCIUM
  19. FUROSEMIDE [Concomitant]
     Active Substance: FUROSEMIDE
     Indication: Diuretic therapy
  20. LEVEMIR [Concomitant]
     Active Substance: INSULIN DETEMIR
     Indication: Diabetes mellitus
  21. LISINOPRIL [Concomitant]
     Active Substance: LISINOPRIL
     Indication: Hypertension
  22. METOPROLOL [Concomitant]
     Active Substance: METOPROLOL
  23. PLAVIX [Concomitant]
     Active Substance: CLOPIDOGREL BISULFATE
  24. ASPIRIN [Concomitant]
     Active Substance: ASPIRIN
  25. IBUPROFEN [Concomitant]
     Active Substance: IBUPROFEN
  26. FAMOTIDINE [Concomitant]
     Active Substance: FAMOTIDINE
  27. AZITHROMYCIN [Concomitant]
     Active Substance: AZITHROMYCIN
  28. CEPHALEXIN [Concomitant]
     Active Substance: CEPHALEXIN
  29. PRISTIQ EXTENDED-RELEASE [Concomitant]
     Active Substance: DESVENLAFAXINE SUCCINATE
  30. AMOXICILLIN [Concomitant]
     Active Substance: AMOXICILLIN
  31. PROMETHAZINE [Concomitant]
     Active Substance: PROMETHAZINE HYDROCHLORIDE
  32. CIPROFLOXACIN [Concomitant]
     Active Substance: CIPROFLOXACIN
  33. PHENAZOPYRIDINE [Concomitant]
     Active Substance: PHENAZOPYRIDINE
  34. FLUTICASONE [Concomitant]
     Active Substance: FLUTICASONE
  35. ZOLPIDEM [Concomitant]
     Active Substance: ZOLPIDEM TARTRATE
  36. METRONIDAZOLE [Concomitant]
     Active Substance: METRONIDAZOLE
  37. NITROFURANTOIN [Concomitant]
     Active Substance: NITROFURANTOIN
  38. JANUMET [Concomitant]
     Active Substance: METFORMIN HYDROCHLORIDE\SITAGLIPTIN PHOSPHATE
  39. ALLEGRA-D [Concomitant]
     Active Substance: FEXOFENADINE HYDROCHLORIDE\PSEUDOEPHEDRINE HYDROCHLORIDE
  40. BENZONATATE [Concomitant]
     Active Substance: BENZONATATE
  41. CYCLOBENZAPRINE [Concomitant]
     Active Substance: CYCLOBENZAPRINE
  42. VYTORIN [Concomitant]
     Active Substance: EZETIMIBE\SIMVASTATIN
  43. ACETAMINOPHEN [Concomitant]
     Active Substance: ACETAMINOPHEN
  44. LANTUS [Concomitant]
     Active Substance: INSULIN GLARGINE
  45. OSELTAMIVIR [Concomitant]
     Active Substance: OSELTAMIVIR
  46. EPOGEN [Concomitant]
     Active Substance: ERYTHROPOIETIN
  47. DIGOXIN [Concomitant]
     Active Substance: DIGOXIN
  48. METOLAZONE [Concomitant]
     Active Substance: METOLAZONE
  49. MELOXICAM [Concomitant]
     Active Substance: MELOXICAM
  50. ONDANSETRON [Concomitant]
     Active Substance: ONDANSETRON
     Dates: start: 20170919

REACTIONS (3)
  - Acute kidney injury [Not Recovered/Not Resolved]
  - Chronic kidney disease [Not Recovered/Not Resolved]
  - Renal failure [Unknown]

NARRATIVE: CASE EVENT DATE: 20150726
